FAERS Safety Report 15589291 (Version 1)
Quarter: 2018Q4

REPORT INFORMATION
  Report Type: Spontaneous
  Country: US (occurrence: US)
  Receive Date: 20181106
  Receipt Date: 20181106
  Transmission Date: 20190205
  Serious: Yes (Other)
  Sender: FDA-Public Use
  Company Number: US-ASTRAZENECA-2018SF42824

PATIENT
  Age: 78 Year
  Sex: Female
  Weight: 87.5 kg

DRUGS (5)
  1. LASIX [Concomitant]
     Active Substance: FUROSEMIDE
     Indication: SWELLING
     Dosage: 20.0MG AS REQUIRED
     Route: 048
  2. SYMBICORT [Suspect]
     Active Substance: BUDESONIDE\FORMOTEROL FUMARATE DIHYDRATE
     Indication: BRONCHITIS
     Dosage: 160 MG 2 PUFFS IN THE MORNING AND 2 PUFFS AT BEDTIME
     Route: 055
     Dates: start: 2016
  3. TRIAMCINOLONE ACETONIDE. [Concomitant]
     Active Substance: TRIAMCINOLONE ACETONIDE
     Indication: RASH
     Dosage: 0.1 % THREE TIMES A DAY
  4. IMFINZI [Suspect]
     Active Substance: DURVALUMAB
     Indication: NON-SMALL CELL LUNG CANCER
     Route: 042
     Dates: start: 20180314, end: 20180621
  5. LISINOPRIL HCTZ [Suspect]
     Active Substance: HYDROCHLOROTHIAZIDE\LISINOPRIL
     Indication: BLOOD PRESSURE ABNORMAL
     Dosage: 20/25 MG
     Route: 048
     Dates: end: 20181023

REACTIONS (25)
  - Non-small cell lung cancer [Unknown]
  - Scab [Unknown]
  - Dry skin [Not Recovered/Not Resolved]
  - Rash [Not Recovered/Not Resolved]
  - Deafness [Not Recovered/Not Resolved]
  - Tremor [Not Recovered/Not Resolved]
  - Balance disorder [Not Recovered/Not Resolved]
  - Musculoskeletal stiffness [Not Recovered/Not Resolved]
  - Dysphonia [Not Recovered/Not Resolved]
  - Weight increased [Recovering/Resolving]
  - Chills [Not Recovered/Not Resolved]
  - Feeling abnormal [Unknown]
  - Alopecia [Unknown]
  - Weight decreased [Unknown]
  - Peripheral swelling [Unknown]
  - Bronchitis [Unknown]
  - Skin haemorrhage [Unknown]
  - Gait disturbance [Not Recovered/Not Resolved]
  - Joint swelling [Recovered/Resolved]
  - Parosmia [Not Recovered/Not Resolved]
  - Dyspnoea [Not Recovered/Not Resolved]
  - Pain of skin [Not Recovered/Not Resolved]
  - Pruritus generalised [Not Recovered/Not Resolved]
  - Somnolence [Unknown]
  - Hypotension [Recovering/Resolving]

NARRATIVE: CASE EVENT DATE: 2018
